FAERS Safety Report 13595142 (Version 2)
Quarter: 2017Q2

REPORT INFORMATION
  Report Type: Spontaneous
  Country: JP (occurrence: JP)
  Receive Date: 20170531
  Receipt Date: 20170609
  Transmission Date: 20170830
  Serious: Yes (Hospitalization)
  Sender: FDA-Public Use
  Company Number: JP-ROCHE-1896838

PATIENT
  Age: 69 Year
  Sex: Female

DRUGS (10)
  1. EDIROL [Concomitant]
     Active Substance: ELDECALCITOL
     Indication: OSTEOPOROSIS
     Route: 048
     Dates: start: 20160105, end: 20160522
  2. TRAMCET [Concomitant]
     Active Substance: ACETAMINOPHEN\TRAMADOL
     Indication: MYOFASCIAL PAIN SYNDROME
     Route: 048
     Dates: start: 20120811, end: 20120815
  3. BONVIVA [Suspect]
     Active Substance: IBANDRONATE SODIUM
     Indication: OSTEOPOROSIS
     Route: 042
     Dates: start: 20160105, end: 20160823
  4. LOXONIN [Concomitant]
     Active Substance: LOXOPROFEN SODIUM
     Indication: MYOFASCIAL PAIN SYNDROME
     Route: 061
     Dates: start: 20130621, end: 20160704
  5. LOXONIN [Concomitant]
     Active Substance: LOXOPROFEN SODIUM
     Indication: MYOFASCIAL PAIN SYNDROME
     Route: 061
     Dates: start: 20150817, end: 20160522
  6. TRAMCET [Concomitant]
     Active Substance: ACETAMINOPHEN\TRAMADOL
     Indication: MYOFASCIAL PAIN SYNDROME
     Route: 048
     Dates: start: 20120802, end: 20120808
  7. TRAMCET [Concomitant]
     Active Substance: ACETAMINOPHEN\TRAMADOL
     Indication: MYOFASCIAL PAIN SYNDROME
     Route: 048
     Dates: start: 20120809, end: 20120810
  8. TRAMCET [Concomitant]
     Active Substance: ACETAMINOPHEN\TRAMADOL
     Indication: MYOFASCIAL PAIN SYNDROME
     Route: 048
     Dates: start: 20120816
  9. FOSAMAC [Suspect]
     Active Substance: ALENDRONATE SODIUM
     Indication: OSTEOPOROSIS
     Route: 048
     Dates: start: 20120331, end: 20151228
  10. LYRICA [Concomitant]
     Active Substance: PREGABALIN
     Indication: NEURALGIA
     Route: 048
     Dates: start: 20140616, end: 20160717

REACTIONS (3)
  - Fall [Unknown]
  - Gait disturbance [Unknown]
  - Femur fracture [Recovering/Resolving]

NARRATIVE: CASE EVENT DATE: 20160328
